FAERS Safety Report 11226067 (Version 1)
Quarter: 2015Q2

REPORT INFORMATION
  Report Type: Spontaneous
  Country: CA (occurrence: CA)
  Receive Date: 20150629
  Receipt Date: 20150629
  Transmission Date: 20150821
  Serious: Yes (Other)
  Sender: FDA-Public Use
  Company Number: CA-BAYER-2015-362052

PATIENT
  Sex: Female

DRUGS (13)
  1. METHOTREXATE [Concomitant]
     Active Substance: METHOTREXATE
     Dosage: UNK
     Route: 048
  2. METHOTREXATE [Concomitant]
     Active Substance: METHOTREXATE
     Dosage: UNK
     Route: 030
  3. PLAQUENIL [Concomitant]
     Active Substance: HYDROXYCHLOROQUINE SULFATE
  4. TETRACYCLINE [Concomitant]
     Active Substance: TETRACYCLINE
     Dosage: UNK UNK, BID
     Route: 048
  5. ARAVA [Concomitant]
     Active Substance: LEFLUNOMIDE
     Dosage: 20 MG, QD
     Route: 048
  6. ASPIRIN. [Suspect]
     Active Substance: ASPIRIN
  7. GOLD [Concomitant]
     Active Substance: GOLD
  8. TETRACYCLINE [Concomitant]
     Active Substance: TETRACYCLINE
     Dosage: UNK, QD
     Route: 048
  9. PREDNISONE. [Concomitant]
     Active Substance: PREDNISONE
  10. CELEBREX [Concomitant]
     Active Substance: CELECOXIB
  11. GRAVOL [Concomitant]
     Active Substance: DIMENHYDRINATE
     Dosage: 4-5 50 MG, UNK
     Route: 048
  12. NAPROSYN [Concomitant]
     Active Substance: NAPROXEN
  13. ARAVA [Concomitant]
     Active Substance: LEFLUNOMIDE
     Dosage: 10 MG, QD
     Route: 048

REACTIONS (3)
  - Foot deformity [None]
  - Maternal exposure during pregnancy [None]
  - Hand deformity [None]
